FAERS Safety Report 20495014 (Version 2)
Quarter: 2022Q1

REPORT INFORMATION
  Report Type: Spontaneous
  Country: RU (occurrence: RU)
  Receive Date: 20220221
  Receipt Date: 20220223
  Transmission Date: 20220423
  Serious: Yes (Hospitalization, Other)
  Sender: FDA-Public Use
  Company Number: RU-BAYER-2022A022483

PATIENT
  Age: 19 Year
  Sex: Female

DRUGS (6)
  1. DROSPIRENONE\ETHINYL ESTRADIOL [Suspect]
     Active Substance: DROSPIRENONE\ETHINYL ESTRADIOL
     Dosage: UNK
     Route: 048
     Dates: start: 201911, end: 202005
  2. NIMESULIDE [Concomitant]
     Active Substance: NIMESULIDE
  3. AMOXICILLIN\CLAVULANATE POTASSIUM [Concomitant]
     Active Substance: AMOXICILLIN\CLAVULANATE POTASSIUM
  4. LEVOFLOXACIN [Concomitant]
     Active Substance: LEVOFLOXACIN
  5. IBUPROFEN [Concomitant]
     Active Substance: IBUPROFEN
  6. NADROPARIN CALCIUM [Concomitant]
     Active Substance: NADROPARIN CALCIUM

REACTIONS (10)
  - Vena cava thrombosis [None]
  - Pulmonary embolism [None]
  - Pneumonia [None]
  - Chest pain [None]
  - Dyspnoea [None]
  - Arthralgia [None]
  - Asthenia [None]
  - Chills [None]
  - Haemoptysis [None]
  - Pyrexia [None]

NARRATIVE: CASE EVENT DATE: 20200416
